FAERS Safety Report 5373230-2 (Version None)
Quarter: 2007Q2

REPORT INFORMATION
  Report Type: 
  Country: None (occurrence: None)
  Receive Date: 20070628
  Receipt Date: 20070621
  Transmission Date: 20071010
  Serious: Yes (Other)
  Sender: FDA-Public Use
  Company Number: PHMT2007CA01414

PATIENT
  Age: 66 Year
  Sex: Female

DRUGS (7)
  1. LAMISIL [Suspect]
     Indication: NAIL TINEA
     Dosage: 250 MG, QD
     Route: 048
     Dates: start: 20070329, end: 20070604
  2. CLINDAMYCIN HCL [Concomitant]
     Route: 048
  3. MAGNESIUM SULFATE [Concomitant]
  4. CALCIUM CHLORIDE [Concomitant]
  5. ROCALTROL [Concomitant]
  6. CORTEF [Concomitant]
  7. LEVOTHYROXINE SODIUM [Concomitant]

REACTIONS (5)
  - AGEUSIA [None]
  - DYSGEUSIA [None]
  - NAUSEA [None]
  - OLFACTORY NERVE DISORDER [None]
  - WEIGHT DECREASED [None]
